FAERS Safety Report 5246006-4 (Version None)
Quarter: 2007Q1

REPORT INFORMATION
  Report Type: 
  Country: None (occurrence: None)
  Receive Date: 20070220
  Receipt Date: 20070212
  Transmission Date: 20070707
  Serious: Yes (Life-Threatening)
  Sender: FDA-Public Use
  Company Number: 2007-00337

PATIENT
  Age: 51 Year

DRUGS (1)
  1. VELCADE [Suspect]
     Indication: MULTIPLE MYELOMA

REACTIONS (7)
  - EPILEPSY [None]
  - ESCHERICHIA BACTERAEMIA [None]
  - GASTRIC HAEMORRHAGE [None]
  - PNEUMOCOCCAL SEPSIS [None]
  - PSEUDOMONAL BACTERAEMIA [None]
  - RENAL TUBULAR NECROSIS [None]
  - RHABDOMYOLYSIS [None]
